FAERS Safety Report 9200303 (Version 2)
Quarter: 2013Q3

REPORT INFORMATION
  Report Type: Spontaneous
  Country: BR (occurrence: BR)
  Receive Date: 20130329
  Receipt Date: 20130702
  Transmission Date: 20140515
  Serious: Yes (Other)
  Sender: FDA-Public Use
  Company Number: CHNY2013BR000880

PATIENT
  Sex: Female

DRUGS (2)
  1. NICOTINELL TTS [Suspect]
     Indication: SMOKING CESSATION THERAPY
     Dosage: 14 MG, QD
     Route: 062
  2. NICOTINELL TTS [Suspect]
     Dosage: UNK, UNK

REACTIONS (11)
  - Dengue fever [Unknown]
  - Application site hypersensitivity [Unknown]
  - Pyrexia [Unknown]
  - Muscle twitching [Unknown]
  - Pruritus [Unknown]
  - Application site burn [Not Recovered/Not Resolved]
  - Application site reaction [Unknown]
  - Application site pruritus [Not Recovered/Not Resolved]
  - Application site irritation [Not Recovered/Not Resolved]
  - Pain [Unknown]
  - Inappropriate schedule of drug administration [Unknown]
